FAERS Safety Report 18528331 (Version 7)
Quarter: 2022Q1

REPORT INFORMATION
  Report Type: Spontaneous
  Country: US (occurrence: US)
  Receive Date: 20201120
  Receipt Date: 20220222
  Transmission Date: 20220423
  Serious: No
  Sender: FDA-Public Use
  Company Number: US-PFIZER INC-2020455831

PATIENT
  Age: 73 Year
  Sex: Male

DRUGS (1)
  1. INLYTA [Suspect]
     Active Substance: AXITINIB
     Indication: Renal cancer
     Dosage: 5 MG

REACTIONS (5)
  - Product dose omission issue [Unknown]
  - Blood pressure abnormal [Unknown]
  - Fatigue [Unknown]
  - Blood pressure increased [Unknown]
  - Dysphonia [Unknown]
